FAERS Safety Report 17954394 (Version 2)
Quarter: 2020Q3

REPORT INFORMATION
  Report Type: Spontaneous
  Country: CA (occurrence: CA)
  Receive Date: 20200629
  Receipt Date: 20200708
  Transmission Date: 20201103
  Serious: Yes (Hospitalization)
  Sender: FDA-Public Use
  Company Number: CA-ROCHE-2623759

PATIENT
  Age: 75 Year
  Sex: Female

DRUGS (78)
  1. DIPHENOXYLATE HYDROCHLORIDE [Concomitant]
     Active Substance: DIPHENOXYLATE HYDROCHLORIDE
  2. DOCOSAHEXAENOIC ACID;EICOSAPENTAENOIC ACID [Concomitant]
     Active Substance: DOCONEXENT\ICOSAPENT
  3. NASONEX [Concomitant]
     Active Substance: MOMETASONE FUROATE
  4. NICOTINAMIDE [Concomitant]
     Active Substance: NIACINAMIDE
  5. VITAMIN B1 [Concomitant]
     Active Substance: THIAMINE HYDROCHLORIDE
  6. VITAMIN C [Concomitant]
     Active Substance: ASCORBIC ACID
  7. OXYCODONE HYDROCHLORIDE. [Concomitant]
     Active Substance: OXYCODONE HYDROCHLORIDE
     Indication: PAIN
     Route: 065
  8. ACTEMRA [Suspect]
     Active Substance: TOCILIZUMAB
     Indication: RHEUMATOID ARTHRITIS
     Route: 042
  9. ASCORBIC ACID. [Concomitant]
     Active Substance: ASCORBIC ACID
  10. LOPERAMIDE [Concomitant]
     Active Substance: LOPERAMIDE
  11. PERPHENAZINE. [Concomitant]
     Active Substance: PERPHENAZINE
     Indication: SLEEP DISORDER
     Route: 048
  12. RETINOL PALMITATE [Concomitant]
     Active Substance: VITAMIN A PALMITATE
  13. ARAVA [Suspect]
     Active Substance: LEFLUNOMIDE
     Indication: PRODUCT USED FOR UNKNOWN INDICATION
     Route: 048
  14. CELECOXIB. [Suspect]
     Active Substance: CELECOXIB
     Indication: ARTHRITIS
     Route: 048
  15. CELECOXIB. [Suspect]
     Active Substance: CELECOXIB
     Indication: ADENOMATOUS POLYPOSIS COLI
     Route: 048
  16. NORTRIPTYLINE HYDROCHLORIDE. [Suspect]
     Active Substance: NORTRIPTYLINE HYDROCHLORIDE
     Indication: SLEEP DISORDER
     Route: 048
  17. ORENCIA [Suspect]
     Active Substance: ABATACEPT
     Dosage: 330.0 DAYS
     Route: 058
  18. XELJANZ [Suspect]
     Active Substance: TOFACITINIB CITRATE
     Indication: PRODUCT USED FOR UNKNOWN INDICATION
     Route: 048
  19. BIOTIN [Concomitant]
     Active Substance: BIOTIN
  20. OMEGA 3 [DOCOSAHEXAENOIC ACID;EICOSAPENTAENOIC ACID] [Concomitant]
     Active Substance: DOCONEXENT\ICOSAPENT
  21. PANTOPRAZOLE MAGNESIUM [Concomitant]
     Active Substance: PANTOPRAZOLE MAGNESIUM
  22. PYRIDOXINE [Concomitant]
     Active Substance: PYRIDOXINE
  23. ACTONEL [Concomitant]
     Active Substance: RISEDRONATE SODIUM
     Indication: PRODUCT USED FOR UNKNOWN INDICATION
     Route: 065
  24. ACTEMRA [Suspect]
     Active Substance: TOCILIZUMAB
     Dosage: 2555.0 DAYS
     Route: 042
  25. CELEBREX [Suspect]
     Active Substance: CELECOXIB
     Indication: RHEUMATOID ARTHRITIS
     Route: 048
  26. SULFASALAZINE. [Suspect]
     Active Substance: SULFASALAZINE
     Indication: PRODUCT USED FOR UNKNOWN INDICATION
     Dosage: 1825.0 DAYS
     Route: 048
  27. XELJANZ [Suspect]
     Active Substance: TOFACITINIB CITRATE
     Indication: RHEUMATOID ARTHRITIS
     Route: 048
  28. D?ALPHA TOCOPHEROL [Concomitant]
     Active Substance: .ALPHA.-TOCOPHEROL, D-
  29. ERGOCALCIFEROL. [Concomitant]
     Active Substance: ERGOCALCIFEROL
  30. ESOMEPRAZOLE MAGNESIUM TRIHYDRATE [Concomitant]
     Active Substance: ESOMEPRAZOLE MAGNESIUM
  31. OXYCODONE TEREPHTHALATE [Concomitant]
     Active Substance: OXYCODONE TEREPHTHALATE
  32. PREDNISONE. [Concomitant]
     Active Substance: PREDNISONE
  33. RIBOFLAVIN [Concomitant]
     Active Substance: RIBOFLAVIN
  34. TYLENOL [Concomitant]
     Active Substance: ACETAMINOPHEN
  35. ACETAMINOPHEN. [Concomitant]
     Active Substance: ACETAMINOPHEN
     Indication: PRODUCT USED FOR UNKNOWN INDICATION
     Route: 048
  36. HYDROXYCHLOROQUINE SULFATE. [Suspect]
     Active Substance: HYDROXYCHLOROQUINE SULFATE
     Indication: RHEUMATOID ARTHRITIS
     Route: 065
  37. ACLASTA [Concomitant]
     Active Substance: ZOLEDRONIC ACID
  38. CYANOCOBALAMIN. [Concomitant]
     Active Substance: CYANOCOBALAMIN
  39. FERGON [Concomitant]
     Active Substance: FERROUS GLUCONATE
  40. FERROUS GLUCONATE [Concomitant]
     Active Substance: FERROUS GLUCONATE
  41. FISH OIL;TOCOPHEROLS MIXED [Concomitant]
  42. FOLIC ACID. [Concomitant]
     Active Substance: FOLIC ACID
  43. NORTRIPTYLINE HYDROCHLORIDE. [Concomitant]
     Active Substance: NORTRIPTYLINE HYDROCHLORIDE
  44. OMEGA?3 FATTY ACIDS [Concomitant]
     Active Substance: OMEGA-3 FATTY ACIDS
  45. SODIUM ASCORBATE [Concomitant]
     Active Substance: SODIUM ASCORBATE
  46. TRAZODONE HYDROCHLORIDE. [Concomitant]
     Active Substance: TRAZODONE HYDROCHLORIDE
  47. APO?GABAPENTIN [Suspect]
     Active Substance: GABAPENTIN
     Indication: PRODUCT USED FOR UNKNOWN INDICATION
     Route: 048
  48. CELEBREX [Suspect]
     Active Substance: CELECOXIB
     Indication: ADENOMATOUS POLYPOSIS COLI
     Route: 065
  49. FENTANYL. [Suspect]
     Active Substance: FENTANYL
     Route: 065
  50. GABAPENTIN. [Suspect]
     Active Substance: GABAPENTIN
     Indication: PRODUCT USED FOR UNKNOWN INDICATION
     Route: 048
  51. ORENCIA [Suspect]
     Active Substance: ABATACEPT
     Indication: RHEUMATOID ARTHRITIS
     Route: 067
  52. ORENCIA [Suspect]
     Active Substance: ABATACEPT
     Indication: PRODUCT USED FOR UNKNOWN INDICATION
     Dosage: 330.0 DAYS
     Route: 042
  53. OXYCONTIN [Suspect]
     Active Substance: OXYCODONE HYDROCHLORIDE
     Indication: PRODUCT USED FOR UNKNOWN INDICATION
     Route: 065
  54. ACETAMINOPHEN;OXYCODONE HYDROCHLORIDE [Concomitant]
     Active Substance: ACETAMINOPHEN\OXYCODONE HYDROCHLORIDE
     Indication: PRODUCT USED FOR UNKNOWN INDICATION
     Route: 048
  55. ATROPINE SULFATE;DIPHENOXYLATE HYDROCHLORIDE [Concomitant]
     Active Substance: ATROPINE SULFATE\DIPHENOXYLATE HYDROCHLORIDE
  56. CALCIUM [Concomitant]
     Active Substance: CALCIUM
  57. ESOMEPRAZOLE. [Concomitant]
     Active Substance: ESOMEPRAZOLE MAGNESIUM
     Indication: PRODUCT USED FOR UNKNOWN INDICATION
     Route: 065
  58. ESOMEPRAZOLE. [Concomitant]
     Active Substance: ESOMEPRAZOLE MAGNESIUM
     Route: 065
  59. FERROUS FUMARATE [Concomitant]
     Active Substance: FERROUS FUMARATE
  60. LOMOTIL [Concomitant]
     Active Substance: ATROPINE SULFATE\DIPHENOXYLATE HYDROCHLORIDE
  61. PANTOPRAZOLE [Concomitant]
     Active Substance: PANTOPRAZOLE
  62. THIAMINE MONONITRATE [Concomitant]
     Active Substance: THIAMINE MONONITRATE
  63. VITAMIN A [RETINOL] [Concomitant]
     Active Substance: RETINOL
  64. FENTANYL. [Suspect]
     Active Substance: FENTANYL
     Indication: PRODUCT USED FOR UNKNOWN INDICATION
     Route: 065
  65. METHOTREXATE. [Suspect]
     Active Substance: METHOTREXATE
     Indication: RHEUMATOID ARTHRITIS
     Route: 058
  66. MYOCHRYSINE [Suspect]
     Active Substance: GOLD SODIUM THIOMALATE
     Indication: RHEUMATOID ARTHRITIS
     Route: 030
  67. SULFASALAZINE. [Suspect]
     Active Substance: SULFASALAZINE
     Indication: RHEUMATOID ARTHRITIS
     Dosage: 1825.0 DAYS
     Route: 048
  68. GENTEAL LUBRICANT [Concomitant]
  69. THIAMINE HYDROCHLORIDE. [Concomitant]
     Active Substance: THIAMINE HYDROCHLORIDE
  70. ENBREL [Suspect]
     Active Substance: ETANERCEPT
     Indication: RHEUMATOID ARTHRITIS
     Route: 058
  71. HYDROXYCHLOROQUINE [Suspect]
     Active Substance: HYDROXYCHLOROQUINE
     Indication: RHEUMATOID ARTHRITIS
     Route: 065
  72. ACETAMINOPHEN;OXYCODONE HYDROCHLORIDE [Concomitant]
     Active Substance: ACETAMINOPHEN\OXYCODONE HYDROCHLORIDE
     Indication: PAIN
  73. ESOMEPRAZOLE. [Concomitant]
     Active Substance: ESOMEPRAZOLE MAGNESIUM
  74. PYRIDOXINE HYDROCHLORIDE. [Concomitant]
     Active Substance: PYRIDOXINE HYDROCHLORIDE
  75. RISEDRONATE SODIUM. [Concomitant]
     Active Substance: RISEDRONATE SODIUM
  76. VITAMIN D3 [Concomitant]
     Active Substance: CHOLECALCIFEROL
  77. PARACETAMOL [Concomitant]
     Active Substance: ACETAMINOPHEN
     Indication: PAIN
     Route: 065
  78. TECTA [Concomitant]
     Active Substance: PANTOPRAZOLE MAGNESIUM
     Indication: PRODUCT USED FOR UNKNOWN INDICATION
     Route: 065

REACTIONS (46)
  - Arthropathy [Unknown]
  - Blood magnesium increased [Unknown]
  - Deformity [Unknown]
  - Presbyacusis [Unknown]
  - Adverse reaction [Unknown]
  - Arthralgia [Unknown]
  - Drug hypersensitivity [Unknown]
  - Drug ineffective [Unknown]
  - Drug intolerance [Unknown]
  - Pain [Unknown]
  - Renal impairment [Unknown]
  - Intentional product use issue [Unknown]
  - Mobility decreased [Unknown]
  - Sleep disorder [Unknown]
  - Adverse drug reaction [Unknown]
  - Blood creatinine increased [Unknown]
  - Dry eye [Unknown]
  - Infection [Unknown]
  - Osteoarthritis [Unknown]
  - Pleural fibrosis [Unknown]
  - Blood potassium increased [Unknown]
  - Bone cyst [Unknown]
  - Cyst [Unknown]
  - Diarrhoea [Unknown]
  - Fatigue [Unknown]
  - Gastrointestinal disorder [Unknown]
  - Musculoskeletal stiffness [Unknown]
  - Osteosclerosis [Unknown]
  - Bone hypertrophy [Unknown]
  - Crohn^s disease [Unknown]
  - Deafness neurosensory [Unknown]
  - Hypersensitivity [Unknown]
  - Joint swelling [Unknown]
  - Myocardial infarction [Unknown]
  - Osteopenia [Unknown]
  - Skin lesion [Unknown]
  - Therapeutic product effect decreased [Unknown]
  - Treatment failure [Unknown]
  - Adverse event [Unknown]
  - Exostosis [Unknown]
  - Nausea [Unknown]
  - Epigastric discomfort [Unknown]
  - Off label use [Unknown]
  - Pain in extremity [Unknown]
  - Pleural thickening [Unknown]
  - Rheumatoid arthritis [Unknown]
